FAERS Safety Report 5853940-0 (Version None)
Quarter: 2008Q3

REPORT INFORMATION
  Report Type: 
  Country: None (occurrence: None)
  Receive Date: 20080822
  Receipt Date: 20080819
  Transmission Date: 20090109
  Serious: Yes (Death)
  Sender: FDA-Public Use
  Company Number: B0529016A

PATIENT
  Age: 46 Year
  Sex: Male

DRUGS (3)
  1. AUGMENTIN '125' [Suspect]
     Indication: GASTRIC CANCER
     Dosage: 1.2G THREE TIMES PER DAY
     Route: 042
     Dates: start: 20080701, end: 20080707
  2. INSULIN [Concomitant]
     Route: 065
  3. UNKNOWN DRUG [Concomitant]

REACTIONS (2)
  - ANAPHYLACTIC SHOCK [None]
  - CONVULSION [None]
